FAERS Safety Report 7818144-0 (Version None)
Quarter: 2011Q4

REPORT INFORMATION
  Report Type: 
  Country: None (occurrence: None)
  Receive Date: 20111017
  Receipt Date: 20110819
  Transmission Date: 20120403
  Serious: Yes (Other)
  Sender: FDA-Public Use
  Company Number: US-ROCHE-GNE320345

PATIENT
  Sex: Female

DRUGS (5)
  1. VITAMIN AND MINERAL PRENATAL SUPPLEMENT W/ FOLIC ACID CAP [Concomitant]
     Indication: PREGNANCY
  2. OMALIZUMAB [Suspect]
     Indication: PRODUCT USED FOR UNKNOWN INDICATION
  3. VENTOLIN [Concomitant]
     Indication: ASTHMA
  4. THEOPHYLLINE [Concomitant]
     Indication: ASTHMA
  5. DULCOLAX TABLET [Concomitant]
     Indication: HAEMORRHOIDS

REACTIONS (1)
  - GESTATIONAL DIABETES [None]
